FAERS Safety Report 9483954 (Version 2)
Quarter: 2013Q3

REPORT INFORMATION
  Report Type: Report from Study
  Country: CA (occurrence: CA)
  Receive Date: 20130828
  Receipt Date: 20130828
  Transmission Date: 20140515
  Serious: Yes (Hospitalization)
  Sender: FDA-Public Use
  Company Number: PHHO2010CA18891

PATIENT
  Age: 70 Year
  Sex: Female
  Weight: 70 kg

DRUGS (24)
  1. ALISKIREN [Suspect]
     Indication: CARDIOVASCULAR DISORDER
     Route: 048
     Dates: start: 20091027, end: 20101210
  2. NOVO-SEMIDE [Concomitant]
     Indication: HYPERTENSION
  3. ENBREL [Concomitant]
     Indication: RHEUMATOID ARTHRITIS
  4. DIOVAN [Concomitant]
     Indication: HYPERTENSION
  5. MONOCOR [Concomitant]
     Indication: HYPERTENSION
  6. NOVOLIN NPH [Concomitant]
     Indication: DIABETES MELLITUS
  7. NOVORAPID [Concomitant]
     Indication: DIABETES MELLITUS
  8. ACETAMINOPHEN [Concomitant]
     Indication: ARTHRITIS
  9. PANTOLOC [Concomitant]
     Indication: GASTROOESOPHAGEAL REFLUX DISEASE
  10. NOVOTRIPTYN [Concomitant]
     Indication: DEPRESSION
  11. CRESTOR [Concomitant]
     Indication: HYPOLIPIDAEMIA
  12. ARAVA [Concomitant]
     Indication: RHEUMATOID ARTHRITIS
  13. ASA [Concomitant]
  14. PLAVIX [Concomitant]
  15. FERROUS SULPHATE [Concomitant]
     Indication: ANAEMIA
  16. NITRO-SPRAY [Concomitant]
     Indication: ANGINA PECTORIS
  17. LASIX [Concomitant]
     Indication: HYPERTENSION
  18. A/H1N1 INFLUENZA PANDEMIC VACCINE [Concomitant]
  19. CILOXAN [Concomitant]
  20. EPREX [Concomitant]
     Indication: HAEMOGLOBIN DECREASED
  21. VITAMIN D [Concomitant]
     Indication: HYPOCALCAEMIA
  22. CALCIUM [Concomitant]
     Indication: HYPOCALCAEMIA
  23. FUROSEMIDE [Concomitant]
     Indication: HYPERTENSION
  24. ACETYLCYSTEINE [Concomitant]

REACTIONS (10)
  - Orthostatic hypotension [Recovered/Resolved]
  - Loss of consciousness [Recovered/Resolved]
  - Pyrexia [Unknown]
  - Gastritis viral [Recovered/Resolved]
  - Hyperthermia [Recovered/Resolved]
  - Anaemia [Recovering/Resolving]
  - Fall [Recovered/Resolved]
  - Urinary incontinence [Recovered/Resolved]
  - Faecal incontinence [Recovered/Resolved]
  - Concomitant disease progression [Recovering/Resolving]
